FAERS Safety Report 10262852 (Version 5)
Quarter: 2015Q2

REPORT INFORMATION
  Report Type: Spontaneous
  Country: US (occurrence: US)
  Receive Date: 20140626
  Receipt Date: 20150407
  Transmission Date: 20150821
  Serious: Yes (Life-Threatening, Congenital Anomaly, Other)
  Sender: FDA-Public Use
  Company Number: US-ELI_LILLY_AND_COMPANY-US201406008168

PATIENT
  Age: 0 Day
  Sex: Female

DRUGS (1)
  1. PROZAC [Suspect]
     Active Substance: FLUOXETINE HYDROCHLORIDE
     Indication: MAJOR DEPRESSION
     Dosage: UNK UNK, UNKNOWN
     Route: 064

REACTIONS (10)
  - Pulmonary valve stenosis congenital [Not Recovered/Not Resolved]
  - Mitral valve incompetence [Unknown]
  - Respiratory distress [Recovered/Resolved]
  - Myocarditis [Recovered/Resolved]
  - Premature baby [Unknown]
  - Pulmonary valve incompetence [Unknown]
  - Foetal exposure during pregnancy [Recovered/Resolved]
  - Congestive cardiomyopathy [Recovered/Resolved]
  - Atrial septal defect [Unknown]
  - Tricuspid valve incompetence [Unknown]

NARRATIVE: CASE EVENT DATE: 19980325
